FAERS Safety Report 7711039-2 (Version None)
Quarter: 2011Q3

REPORT INFORMATION
  Report Type: 
  Country: None (occurrence: None)
  Receive Date: 20110825
  Receipt Date: 20110819
  Transmission Date: 20111222
  Serious: Yes (Hospitalization)
  Sender: FDA-Public Use
  Company Number: FR-BRISTOL-MYERS SQUIBB COMPANY-15985633

PATIENT
  Age: 69 Year
  Sex: Female
  Weight: 71 kg

DRUGS (3)
  1. IPILIMUMAB [Suspect]
     Indication: MALIGNANT MELANOMA
     Dosage: 1ST INFU:30JUN11 2ND INFU: 22JUL11
     Route: 042
     Dates: start: 20110630, end: 20110722
  2. EFFEXOR [Concomitant]
  3. LEVOTHYROXINE SODIUM [Concomitant]
     Dosage: 1DF IS 25MCG AND 50MCG ALTERNATIVELY
     Dates: end: 20110812

REACTIONS (4)
  - HYPERTHYROIDISM [None]
  - PALPITATIONS [None]
  - HYPERSOMNIA [None]
  - DECREASED APPETITE [None]
